FAERS Safety Report 18314754 (Version 1)
Quarter: 2020Q3

REPORT INFORMATION
  Report Type: Report from Study
  Country: US (occurrence: US)
  Receive Date: 20200925
  Receipt Date: 20200925
  Transmission Date: 20201103
  Serious: Yes (Other)
  Sender: FDA-Public Use
  Company Number: US-JNJFOC-A-NJ2020-207883

PATIENT
  Age: 64 Year
  Sex: Female
  Weight: 104.76 kg

DRUGS (6)
  1. UPTRAVI [Suspect]
     Active Substance: SELEXIPAG
     Dosage: 400 MCG, BID
     Route: 048
     Dates: start: 20200729
  2. COUMADIN [Concomitant]
     Active Substance: WARFARIN SODIUM
  3. UPTRAVI [Suspect]
     Active Substance: SELEXIPAG
     Dosage: 600 MCG, BID
     Route: 048
     Dates: start: 20200729
  4. SILDENAFIL CITRATE. [Concomitant]
     Active Substance: SILDENAFIL CITRATE
  5. OPSUMIT [Suspect]
     Active Substance: MACITENTAN
     Indication: PULMONARY ARTERIAL HYPERTENSION
     Dosage: 10 MG, QD
     Route: 048
  6. UPTRAVI [Suspect]
     Active Substance: SELEXIPAG
     Indication: PULMONARY ARTERIAL HYPERTENSION
     Dosage: 200 MCG, BID
     Route: 048
     Dates: start: 20200729

REACTIONS (28)
  - Headache [Not Recovered/Not Resolved]
  - Urinary retention [Not Recovered/Not Resolved]
  - Nausea [Not Recovered/Not Resolved]
  - Decreased appetite [Not Recovered/Not Resolved]
  - Constipation [Not Recovered/Not Resolved]
  - Dizziness [Unknown]
  - Palpitations [Unknown]
  - Flushing [Unknown]
  - Dyspnoea [Unknown]
  - Fatigue [Unknown]
  - Pain [Not Recovered/Not Resolved]
  - Anxiety [Unknown]
  - Chest pain [Unknown]
  - Atrial fibrillation [Recovered/Resolved]
  - Pain in extremity [Not Recovered/Not Resolved]
  - Depression [Unknown]
  - Contusion [Unknown]
  - Fall [Unknown]
  - Cough [Unknown]
  - Diarrhoea [Unknown]
  - Oedema peripheral [Unknown]
  - Chest discomfort [Unknown]
  - Abdominal pain [Not Recovered/Not Resolved]
  - Bladder pain [Not Recovered/Not Resolved]
  - Swelling [Unknown]
  - Dyspnoea exertional [Unknown]
  - Pain in jaw [Not Recovered/Not Resolved]
  - Retching [Unknown]

NARRATIVE: CASE EVENT DATE: 202007
